FAERS Safety Report 17610578 (Version 1)
Quarter: 2020Q2

REPORT INFORMATION
  Report Type: Spontaneous
  Country: JP (occurrence: JP)
  Receive Date: 20200401
  Receipt Date: 20200401
  Transmission Date: 20200713
  Serious: Yes (Hospitalization)
  Sender: FDA-Public Use
  Company Number: JP-STRIDES ARCOLAB LIMITED-2020SP004134

PATIENT
  Age: 52 Year
  Sex: Female

DRUGS (6)
  1. TACROLIMUS. [Suspect]
     Active Substance: TACROLIMUS
     Indication: PROPHYLAXIS AGAINST GRAFT VERSUS HOST DISEASE
     Dosage: UNK
     Route: 065
  2. METHOTREXATE. [Suspect]
     Active Substance: METHOTREXATE
     Indication: PROPHYLAXIS AGAINST GRAFT VERSUS HOST DISEASE
     Dosage: UNK
     Route: 065
  3. METHOTREXATE. [Suspect]
     Active Substance: METHOTREXATE
     Indication: ALLOGENIC STEM CELL TRANSPLANTATION
  4. MELPHALAN. [Concomitant]
     Active Substance: MELPHALAN
     Indication: BONE MARROW CONDITIONING REGIMEN
     Dosage: UNK
     Route: 065
  5. TACROLIMUS. [Suspect]
     Active Substance: TACROLIMUS
     Indication: ALLOGENIC STEM CELL TRANSPLANTATION
  6. FLUDARABINE [Concomitant]
     Active Substance: FLUDARABINE PHOSPHATE
     Indication: BONE MARROW CONDITIONING REGIMEN
     Dosage: UNK
     Route: 065

REACTIONS (13)
  - Cardiac failure [Unknown]
  - Pleural effusion [Unknown]
  - Renal impairment [Recovered/Resolved]
  - Right ventricular diastolic collapse [Unknown]
  - Left ventricular dysfunction [Unknown]
  - Drug ineffective for unapproved indication [Unknown]
  - Cardiac tamponade [Recovered/Resolved]
  - Fatigue [Unknown]
  - Jugular vein distension [Unknown]
  - Pericardial effusion [Recovered/Resolved]
  - Febrile neutropenia [Recovered/Resolved]
  - Weight increased [Recovered/Resolved]
  - Graft versus host disease [Unknown]
